FAERS Safety Report 23967064 (Version 1)
Quarter: 2024Q2

REPORT INFORMATION
  Report Type: Spontaneous
  Country: US (occurrence: US)
  Receive Date: 20240612
  Receipt Date: 20240612
  Transmission Date: 20240716
  Serious: No
  Sender: FDA-Public Use
  Company Number: US-PFIZER INC-202400191039

PATIENT
  Age: 76 Year
  Sex: Female
  Weight: 104 kg

DRUGS (1)
  1. HYDROCORTISONE ACETATE [Suspect]
     Active Substance: HYDROCORTISONE ACETATE
     Dosage: PUT IT ON YOUR HANDS AND APPLY IT
     Route: 061

REACTIONS (1)
  - Drug ineffective [Unknown]
